FAERS Safety Report 14814594 (Version 1)
Quarter: 2018Q2

REPORT INFORMATION
  Report Type: Spontaneous
  Country: DE (occurrence: DE)
  Receive Date: 20180426
  Receipt Date: 20180426
  Transmission Date: 20180711
  Serious: Yes (Hospitalization)
  Sender: FDA-Public Use
  Company Number: DE-WEST-WARD PHARMACEUTICALS CORP.-DE-H14001-18-03210

PATIENT
  Age: 73 Year
  Sex: Male
  Weight: 89 kg

DRUGS (12)
  1. ABRAXANE [Suspect]
     Active Substance: PACLITAXEL
     Route: 041
     Dates: start: 20170624
  2. DEXAMETHASONE. [Concomitant]
     Active Substance: DEXAMETHASONE
     Indication: PROPHYLAXIS
     Route: 041
     Dates: start: 20170624
  3. PANTOPRAZOLE [Concomitant]
     Active Substance: PANTOPRAZOLE
     Indication: PROPHYLAXIS
     Route: 048
  4. ABRAXANE [Suspect]
     Active Substance: PACLITAXEL
     Indication: NON-SMALL CELL LUNG CANCER
     Route: 041
     Dates: start: 20170710, end: 20170927
  5. SPIRIVA [Concomitant]
     Active Substance: TIOTROPIUM BROMIDE MONOHYDRATE
     Indication: PROPHYLAXIS
     Dosage: 18 UNKNOWN
     Route: 055
  6. CARBOPLATIN. [Suspect]
     Active Substance: CARBOPLATIN
     Indication: NON-SMALL CELL LUNG CANCER
     Dosage: 5 MG* MIN/ML
     Route: 041
     Dates: start: 20170624, end: 20170913
  7. RAMIPRIL BETA COMP [Concomitant]
     Indication: PROPHYLAXIS
     Route: 048
  8. BISOPROLOL-RATIOPHARM [Concomitant]
     Indication: PROPHYLAXIS
     Route: 048
  9. PREDNISOLON-RATIOPHARM [Concomitant]
     Indication: PROPHYLAXIS
     Route: 048
  10. MCP-RATIOPHARM SF [Concomitant]
     Indication: PROPHYLAXIS
     Route: 065
  11. CIPRALEX [Concomitant]
     Active Substance: ESCITALOPRAM OXALATE
     Indication: PROPHYLAXIS
     Route: 048
  12. GRANISETRON [Concomitant]
     Active Substance: GRANISETRON
     Indication: PROPHYLAXIS
     Route: 041
     Dates: start: 20170624

REACTIONS (5)
  - Fatigue [Not Recovered/Not Resolved]
  - Tumour necrosis [Recovered/Resolved]
  - Anaemia [Recovered/Resolved]
  - Diarrhoea [Recovered/Resolved]
  - Off label use [Recovered/Resolved]

NARRATIVE: CASE EVENT DATE: 20170624
